FAERS Safety Report 4749631-X (Version None)
Quarter: 2005Q3

REPORT INFORMATION
  Report Type: 
  Country: None (occurrence: None)
  Receive Date: 20050822
  Receipt Date: 20050810
  Transmission Date: 20060218
  Serious: Yes (Death, Hospitalization)
  Sender: FDA-Public Use
  Company Number: US-MERCK-0508USA02043

PATIENT
  Age: 73 Year
  Sex: Female
  Weight: 91 kg

DRUGS (2)
  1. VIOXX [Suspect]
     Indication: UPPER LIMB FRACTURE
     Route: 048
     Dates: start: 20000208, end: 20030822
  2. VIOXX [Suspect]
     Indication: OSTEOPOROSIS
     Route: 048
     Dates: start: 20000208, end: 20030822

REACTIONS (7)
  - ANAL FISSURE [None]
  - BACK PAIN [None]
  - CORONARY ARTERY DISEASE [None]
  - FALL [None]
  - MYOCARDIAL INFARCTION [None]
  - RENAL ABSCESS [None]
  - UPPER LIMB FRACTURE [None]
